FAERS Safety Report 21404864 (Version 4)
Quarter: 2022Q4

REPORT INFORMATION
  Report Type: Spontaneous
  Country: JP (occurrence: JP)
  Receive Date: 20221003
  Receipt Date: 20221207
  Transmission Date: 20230112
  Serious: Yes (Other)
  Sender: FDA-Public Use
  Company Number: JP-NOVARTISPH-NVSJ2022JP092588

PATIENT
  Age: 3 Year
  Sex: Male

DRUGS (2)
  1. ILARIS [Suspect]
     Active Substance: CANAKINUMAB
     Indication: Still^s disease
     Dosage: UNK
     Route: 058
     Dates: end: 20220823
  2. PREDNISOLONE [Concomitant]
     Active Substance: PREDNISOLONE
     Indication: Product used for unknown indication
     Dosage: 30 MG
     Route: 065

REACTIONS (4)
  - Interstitial lung disease [Not Recovered/Not Resolved]
  - Neutropenia [Recovered/Resolved]
  - Liver disorder [Recovering/Resolving]
  - Alanine aminotransferase increased [Unknown]

NARRATIVE: CASE EVENT DATE: 20220826
